FAERS Safety Report 5724868-1 (Version None)
Quarter: 2008Q2

REPORT INFORMATION
  Report Type: 
  Country: None (occurrence: None)
  Receive Date: 20080430
  Receipt Date: 20080430
  Transmission Date: 20081010
  Serious: Yes (Hospitalization)
  Sender: FDA-Public Use
  Company Number: None

PATIENT
  Sex: Male
  Weight: 77.3 kg

DRUGS (10)
  1. TEMOZOLOMIDE [Suspect]
     Dosage: 6235 MG
  2. COREG [Concomitant]
  3. PREVACID [Concomitant]
  4. SYNTHROID [Concomitant]
  5. PERCOCET [Concomitant]
  6. HYDROXYZINE [Concomitant]
  7. CLORTRIMAZOLE TROCHE [Concomitant]
  8. ZOCOR [Concomitant]
  9. ZETIA [Concomitant]
  10. ZOFRAN [Concomitant]

REACTIONS (2)
  - RASH ERYTHEMATOUS [None]
  - RASH PRURITIC [None]
